FAERS Safety Report 9348567 (Version 4)
Quarter: 2013Q3

REPORT INFORMATION
  Report Type: Report from Study
  Country: US (occurrence: US)
  Receive Date: 20130614
  Receipt Date: 20130829
  Transmission Date: 20140515
  Serious: No
  Sender: FDA-Public Use
  Company Number: US-VERTEX PHARMACEUTICALS INC-2013-007028

PATIENT
  Age: 51 Year
  Sex: Male
  Weight: 147 kg

DRUGS (13)
  1. VX-950 (TELAPREVIR) [Suspect]
     Indication: HEPATITIS C
     Dosage: 750 MG, TID
     Route: 048
     Dates: start: 20130411, end: 20130704
  2. COPEGUS [Suspect]
     Indication: HEPATITIS C
     Dosage: 400 MG AM/600 MG PM
     Route: 048
     Dates: start: 20130411
  3. PEGASYS [Suspect]
     Indication: HEPATITIS C
     Dosage: 180 ?G, QW
     Route: 058
     Dates: start: 20130411
  4. DIABETES MEDICINE [Concomitant]
  5. CHOLESTEROL MEDICINE [Concomitant]
  6. CRESTOR [Concomitant]
     Dosage: 20 MG, QHS
  7. HUMALOG [Concomitant]
     Dosage: 45 IU, AC
  8. HYDROCODONE/APAP [Concomitant]
     Indication: PAIN
     Dosage: 75/325 TID, PRN
     Route: 048
  9. LANTUS [Concomitant]
     Dosage: 50 IU, QHS
  10. LOSARTAN [Concomitant]
     Indication: BLOOD PRESSURE
     Dosage: 100 MG, QD
  11. NEXIUM [Concomitant]
     Dosage: 20 MG, BID
     Route: 048
  12. ONDANSETRON [Concomitant]
     Dosage: 8 MG, (0.5-1) TID
     Route: 048
  13. PROMETHAZINE [Concomitant]

REACTIONS (14)
  - Pneumonia [Not Recovered/Not Resolved]
  - Dyspnoea exertional [Not Recovered/Not Resolved]
  - Dizziness [Not Recovered/Not Resolved]
  - Feeling cold [Not Recovered/Not Resolved]
  - Migraine [Not Recovered/Not Resolved]
  - Weight increased [Not Recovered/Not Resolved]
  - Decreased appetite [Recovered/Resolved]
  - Epigastric discomfort [Not Recovered/Not Resolved]
  - Rash pruritic [Recovered/Resolved]
  - Nausea [Not Recovered/Not Resolved]
  - Anal pruritus [Not Recovered/Not Resolved]
  - Anorectal discomfort [Not Recovered/Not Resolved]
  - Haemorrhoids [Not Recovered/Not Resolved]
  - Diarrhoea [Recovered/Resolved]
